FAERS Safety Report 17347307 (Version 1)
Quarter: 2020Q1

REPORT INFORMATION
  Report Type: Spontaneous
  Country: US (occurrence: US)
  Receive Date: 20200129
  Receipt Date: 20200129
  Transmission Date: 20200409
  Serious: Yes (Other)
  Sender: FDA-Public Use
  Company Number: None

PATIENT
  Age: 65 Year
  Sex: Female
  Weight: 89.1 kg

DRUGS (10)
  1. ARIMIDEX [Suspect]
     Active Substance: ANASTROZOLE
     Indication: OESTROGEN RECEPTOR POSITIVE BREAST CANCER
     Route: 048
     Dates: start: 20161001, end: 20200110
  2. PROBIOTIC [Concomitant]
     Active Substance: PROBIOTICS NOS
  3. VALTREX [Concomitant]
     Active Substance: VALACYCLOVIR HYDROCHLORIDE
  4. GELATIN [Concomitant]
     Active Substance: GELATIN
  5. MAGNESIUM [Concomitant]
     Active Substance: MAGNESIUM
  6. MILK THISTLE [Concomitant]
     Active Substance: DIETARY SUPPLEMENT\HERBALS\MILK THISTLE
  7. TURMERIC [Concomitant]
     Active Substance: HERBALS\TURMERIC
  8. FISH OIL [Concomitant]
     Active Substance: FISH OIL
  9. ATIVAN [Concomitant]
     Active Substance: LORAZEPAM
  10. VITAMIN D [Concomitant]
     Active Substance: VITAMIN D NOS

REACTIONS (9)
  - Insomnia [None]
  - Vaginal discharge [None]
  - Quality of life decreased [None]
  - Anxiety [None]
  - Vaginal haemorrhage [None]
  - Hepatic enzyme increased [None]
  - Peripheral swelling [None]
  - Arthralgia [None]
  - Bone loss [None]

NARRATIVE: CASE EVENT DATE: 20161001
